FAERS Safety Report 7102703-7 (Version None)
Quarter: 2010Q4

REPORT INFORMATION
  Report Type: 
  Country: None (occurrence: None)
  Receive Date: 20101115
  Receipt Date: 20101019
  Transmission Date: 20110411
  Serious: Yes (Hospitalization)
  Sender: FDA-Public Use
  Company Number: PHHY2010FR70634

PATIENT
  Sex: Female

DRUGS (1)
  1. EXJADE [Suspect]
     Dosage: 500 MG, UNK
     Route: 048

REACTIONS (5)
  - ANGIOEDEMA [None]
  - APALLIC SYNDROME [None]
  - CEREBRAL ISCHAEMIA [None]
  - MULTI-ORGAN FAILURE [None]
  - RASH [None]
